FAERS Safety Report 7979004 (Version 5)
Quarter: 2014Q1

REPORT INFORMATION
  Report Type: Report from Study
  Country: DE (occurrence: DE)
  Receive Date: 20110607
  Receipt Date: 20140326
  Transmission Date: 20141002
  Serious: Yes (Other)
  Sender: FDA-Public Use
  Company Number: DE-UCBSA-033861

PATIENT
  Age: 50 Year
  Sex: Male
  Weight: 77 kg

DRUGS (5)
  1. CERTOLIZUMAB PEGOL [Suspect]
     Indication: RHEUMATOID ARTHRITIS
     Route: 058
     Dates: end: 20110317
  2. METAMIZOL [Concomitant]
     Indication: RHEUMATOID ARTHRITIS
     Dates: start: 20100702
  3. PREDNISOLONE [Concomitant]
     Indication: SERONEGATIVE ARTHRITIS
     Dates: start: 20070212
  4. ADENURIC [Concomitant]
     Indication: HYPERURICAEMIA
     Dates: start: 20100531
  5. RAMIPLUS [Concomitant]
     Indication: HYPERTENSION
     Dosage: 2.5 MG RAMIPRIL; 12.5 MG HYDROCHLOROTHIAZIDE
     Dates: start: 20100702

REACTIONS (1)
  - Psoriasis [Recovered/Resolved]
